FAERS Safety Report 13818722 (Version 1)
Quarter: 2017Q3

REPORT INFORMATION
  Report Type: Report from Study
  Country: US (occurrence: US)
  Receive Date: 20170731
  Receipt Date: 20170731
  Transmission Date: 20171127
  Serious: No
  Sender: FDA-Public Use
  Company Number: US-EXELIXIS-CABO-17008511

PATIENT
  Sex: Female

DRUGS (8)
  1. CABOMETYX [Suspect]
     Active Substance: CABOZANTINIB S-MALATE
     Indication: RENAL CANCER
     Dosage: 20 MG, QD
     Route: 048
     Dates: start: 20161205
  2. ENOXAPARIN [Concomitant]
     Active Substance: ENOXAPARIN
  3. TRIAMCINOLON [Concomitant]
  4. CYCLOSPORINE. [Concomitant]
     Active Substance: CYCLOSPORINE
  5. FOLIC ACID. [Concomitant]
     Active Substance: FOLIC ACID
  6. OLANZAPINE. [Concomitant]
     Active Substance: OLANZAPINE
  7. ACETAMINOPHEN W/HYDROCODONE [Concomitant]
     Active Substance: ACETAMINOPHEN\HYDROCODONE
  8. PANTOPRAZOLE [Concomitant]
     Active Substance: PANTOPRAZOLE

REACTIONS (2)
  - Somnolence [Unknown]
  - Constipation [Unknown]
